FAERS Safety Report 8975986 (Version 1)
Quarter: 2012Q4

REPORT INFORMATION
  Report Type: 
  Country: US (occurrence: US)
  Receive Date: 20121219
  Receipt Date: 20121219
  Transmission Date: 20130627
  Serious: No
  Sender: FDA-Public Use
  Company Number: US-BAYER-2012-132952

PATIENT
  Age: 35 Year
  Sex: Female
  Weight: 57 kg

DRUGS (4)
  1. ALEVE CAPLET/TABLET,MIDOL EXTENDED RELIEF CAPLET [Suspect]
     Indication: HEADACHE
     Dosage: 2 DF, UNK
     Route: 048
     Dates: start: 20121212
  2. ASMANEX [Concomitant]
     Dosage: UNK
  3. ALLEGRA [Concomitant]
     Dosage: UNK
  4. ESTROSTEP [Concomitant]
     Dosage: UNK

REACTIONS (3)
  - Overdose [None]
  - Dizziness [Recovered/Resolved]
  - Drug ineffective [None]
